FAERS Safety Report 8996970 (Version 2)
Quarter: 2013Q1

REPORT INFORMATION
  Report Type: Spontaneous
  Country: US (occurrence: None)
  Receive Date: 20121221
  Receipt Date: 20130212
  Transmission Date: 20140127
  Serious: No
  Sender: FDA-Public Use
  Company Number: NXG-12-005

PATIENT
  Sex: Male

DRUGS (1)
  1. PEG 527 GM [Suspect]
     Indication: CONSTIPATION

REACTIONS (2)
  - Flatulence [None]
  - Discomfort [None]
